FAERS Safety Report 6432026-0 (Version None)
Quarter: 2009Q4

REPORT INFORMATION
  Report Type: 
  Country: None (occurrence: None)
  Receive Date: 20091109
  Receipt Date: 20091008
  Transmission Date: 20100525
  Serious: No
  Sender: FDA-Public Use
  Company Number: US-BAYER-200935815NA

PATIENT
  Age: 76 Year
  Sex: Male

DRUGS (4)
  1. CIPROFLOXACIN [Suspect]
     Indication: DRUG USE FOR UNKNOWN INDICATION
     Dates: start: 20090920, end: 20090921
  2. LEVAQUIN [Suspect]
     Indication: DRUG USE FOR UNKNOWN INDICATION
     Dates: start: 20090901
  3. PROVENTIL-HFA [Concomitant]
  4. VENTOLIN [Concomitant]

REACTIONS (2)
  - MUSCLE SPASMS [None]
  - MUSCULOSKELETAL DISCOMFORT [None]
